FAERS Safety Report 18844296 (Version 1)
Quarter: 2021Q1

REPORT INFORMATION
  Report Type: Report from Study
  Country: CA (occurrence: CA)
  Receive Date: 20210203
  Receipt Date: 20210203
  Transmission Date: 20210419
  Serious: No
  Sender: FDA-Public Use
  Company Number: CA-EXELIXIS-CABO-20028176

PATIENT
  Age: 74 Year
  Sex: Male
  Weight: 77 kg

DRUGS (25)
  1. CIPRALEX [Concomitant]
     Active Substance: ESCITALOPRAM OXALATE
     Dosage: UNK
  2. CALCIUM [Concomitant]
     Active Substance: CALCIUM
     Dosage: UNK
  3. VITAMIN B12 [Concomitant]
     Active Substance: CYANOCOBALAMIN
     Dosage: UNK
  4. METFORMIN [Concomitant]
     Active Substance: METFORMIN HYDROCHLORIDE
     Dosage: UNK
  5. MUCOSITIS MOUTHWASH [Concomitant]
  6. ROSUVASTATIN. [Concomitant]
     Active Substance: ROSUVASTATIN
     Dosage: 10 MG
  7. OLANZAPINE. [Concomitant]
     Active Substance: OLANZAPINE
  8. METFORMIN ER [Concomitant]
     Active Substance: METFORMIN HYDROCHLORIDE
  9. INDOMETHACIN. [Concomitant]
     Active Substance: INDOMETHACIN
  10. CABOMETYX [Suspect]
     Active Substance: CABOZANTINIB S-MALATE
     Dosage: 40 MG, QD
     Route: 048
     Dates: start: 20200306, end: 20200719
  11. ATACAND [Concomitant]
     Active Substance: CANDESARTAN CILEXETIL
     Dosage: UNK
  12. JARDIANCE [Concomitant]
     Active Substance: EMPAGLIFLOZIN
     Dosage: UNK
  13. CRESTOR [Concomitant]
     Active Substance: ROSUVASTATIN CALCIUM
     Dosage: UNK
  14. ASA [Concomitant]
     Active Substance: ASPIRIN
     Dosage: UNK
  15. RABEPRAZOLE SOD [Concomitant]
     Active Substance: RABEPRAZOLE SODIUM
     Dosage: 20 MG, QD
  16. LACTOBACILLUS RHAMNOSUS [Concomitant]
     Active Substance: LACTOBACILLUS RHAMNOSUS
  17. SITAGLIPTINA [Concomitant]
     Active Substance: SITAGLIPTIN
  18. METOCLOPRAMIDE. [Concomitant]
     Active Substance: METOCLOPRAMIDE
  19. ACETAMINOPHEN. [Concomitant]
     Active Substance: ACETAMINOPHEN
  20. CABOMETYX [Suspect]
     Active Substance: CABOZANTINIB S-MALATE
     Indication: RENAL CELL CARCINOMA
     Dosage: 60 MG, QD
     Route: 048
     Dates: start: 20200116, end: 20200227
  21. VITAMIN D [Concomitant]
     Active Substance: VITAMIN D NOS
     Dosage: UNK
  22. ACIDOPHILUS [Concomitant]
     Active Substance: LACTOBACILLUS ACIDOPHILUS
     Dosage: UNK
  23. PEG?3350 AND ELECTROLYTES [Concomitant]
     Active Substance: POLYETHYLENE GLYCOL 3350\POTASSIUM CHLORIDE\SODIUM BICARBONATE\SODIUM CHLORIDE\SODIUM SULFATE
  24. LORAZEPAM. [Concomitant]
     Active Substance: LORAZEPAM
  25. MISCELLANEOUS(TAH) [Concomitant]

REACTIONS (14)
  - Hypersomnia [Unknown]
  - Dysgeusia [Recovering/Resolving]
  - Decreased appetite [Unknown]
  - Dizziness [Recovering/Resolving]
  - Alopecia [Recovering/Resolving]
  - Cognitive disorder [Recovering/Resolving]
  - Nausea [Recovering/Resolving]
  - Dysphonia [Recovering/Resolving]
  - Headache [Recovering/Resolving]
  - Oral pain [Unknown]
  - Fatigue [Recovering/Resolving]
  - Rash [Recovering/Resolving]
  - Chills [Recovering/Resolving]
  - Mucosal inflammation [Recovering/Resolving]

NARRATIVE: CASE EVENT DATE: 20200201
